FAERS Safety Report 15172718 (Version 1)
Quarter: 2018Q3

REPORT INFORMATION
  Report Type: Spontaneous
  Country: RU (occurrence: RU)
  Receive Date: 20180720
  Receipt Date: 20180720
  Transmission Date: 20181010
  Serious: Yes (Hospitalization, Other)
  Sender: FDA-Public Use
  Company Number: RU-ASTRAZENECA-2018SE31222

PATIENT
  Age: 54 Year
  Sex: Male
  Weight: 130 kg

DRUGS (6)
  1. BISOPROLOL [Concomitant]
     Active Substance: BISOPROLOL
  2. BRILINTA [Suspect]
     Active Substance: TICAGRELOR
     Indication: MYOCARDIAL INFARCTION
     Route: 048
     Dates: start: 20171215
  3. EPLERENONE. [Concomitant]
     Active Substance: EPLERENONE
  4. ENALAPRIL [Concomitant]
     Active Substance: ENALAPRIL
  5. ROSUVASTATIN. [Concomitant]
     Active Substance: ROSUVASTATIN
  6. THROMBO ASS [Concomitant]
     Active Substance: ASPIRIN

REACTIONS (6)
  - Diabetes mellitus [Not Recovered/Not Resolved]
  - Dyspnoea [Recovered/Resolved]
  - Retching [Not Recovered/Not Resolved]
  - Mouth haemorrhage [Not Recovered/Not Resolved]
  - Blood glucose increased [Not Recovered/Not Resolved]
  - Aversion [Not Recovered/Not Resolved]

NARRATIVE: CASE EVENT DATE: 201801
